FAERS Safety Report 24902872 (Version 1)
Quarter: 2025Q1

REPORT INFORMATION
  Report Type: Spontaneous
  Country: CA (occurrence: CA)
  Receive Date: 20250130
  Receipt Date: 20250130
  Transmission Date: 20250408
  Serious: Yes (Other)
  Sender: ROCHE
  Company Number: CA-002147023-NVSC2025CA011612

PATIENT
  Age: 41 Year
  Sex: Female

DRUGS (1)
  1. OMALIZUMAB [Suspect]
     Active Substance: OMALIZUMAB
     Indication: Chronic spontaneous urticaria
     Dosage: 150 MG, Q4W
     Route: 058

REACTIONS (7)
  - Acne [Recovering/Resolving]
  - Inflammation [Recovering/Resolving]
  - Lower respiratory tract congestion [Recovering/Resolving]
  - Papule [Recovering/Resolving]
  - Pustule [Recovering/Resolving]
  - Skin lesion [Recovering/Resolving]
  - Telangiectasia [Recovering/Resolving]
